FAERS Safety Report 16418976 (Version 1)
Quarter: 2019Q2

REPORT INFORMATION
  Report Type: Spontaneous
  Country: US (occurrence: US)
  Receive Date: 20190612
  Receipt Date: 20190612
  Transmission Date: 20190711
  Serious: Yes (Other)
  Sender: FDA-Public Use
  Company Number: US-DRREDDYS-USA/USA/19/0110991

PATIENT
  Age: 62 Year
  Sex: Female

DRUGS (1)
  1. DAPTOMYCIN FOR INJECTION [Suspect]
     Active Substance: DAPTOMYCIN
     Indication: STAPHYLOCOCCAL INFECTION
     Route: 065

REACTIONS (4)
  - Rash erythematous [Recovered/Resolved]
  - Acute kidney injury [Recovered/Resolved]
  - Eosinophilia [Unknown]
  - Tubulointerstitial nephritis [Unknown]
